FAERS Safety Report 20223956 (Version 1)
Quarter: 2021Q4

REPORT INFORMATION
  Report Type: Spontaneous
  Country: US (occurrence: US)
  Receive Date: 20211223
  Receipt Date: 20211223
  Transmission Date: 20220303
  Serious: Yes (Hospitalization, Other)
  Sender: FDA-Public Use
  Company Number: US-TEVA-2021-US-1989851

PATIENT
  Age: 33 Year
  Sex: Female

DRUGS (15)
  1. DEXMEDETOMIDINE [Suspect]
     Active Substance: DEXMEDETOMIDINE
     Indication: Product used for unknown indication
     Route: 065
  2. NOREPINEPHRINE [Suspect]
     Active Substance: NOREPINEPHRINE
     Indication: Hypotension
     Route: 065
  3. FENTANYL [Suspect]
     Active Substance: FENTANYL
     Indication: Agitation
     Route: 050
  4. FENTANYL [Suspect]
     Active Substance: FENTANYL
     Indication: Drug dependence
     Route: 065
  5. MIDAZOLAM [Suspect]
     Active Substance: MIDAZOLAM
     Indication: Agitation
     Route: 050
  6. MIDAZOLAM [Suspect]
     Active Substance: MIDAZOLAM
     Indication: Drug dependence
     Route: 065
  7. BELBUCA [Suspect]
     Active Substance: BUPRENORPHINE HYDROCHLORIDE
     Indication: Drug use disorder
     Dosage: FOUR DOSES
     Route: 002
  8. BELBUCA [Suspect]
     Active Substance: BUPRENORPHINE HYDROCHLORIDE
     Dosage: FOUR DOSES
     Route: 002
  9. SUBOXONE [Suspect]
     Active Substance: BUPRENORPHINE HYDROCHLORIDE\NALOXONE HYDROCHLORIDE
     Indication: Drug use disorder
     Dosage: FOUR DOSES
     Route: 002
  10. SUBOXONE [Suspect]
     Active Substance: BUPRENORPHINE HYDROCHLORIDE\NALOXONE HYDROCHLORIDE
     Dosage: FOUR DOSES
     Route: 002
  11. SUBOXONE [Suspect]
     Active Substance: BUPRENORPHINE HYDROCHLORIDE\NALOXONE HYDROCHLORIDE
     Dosage: CONTINUED FOR MAINTENANCE THERAPY
     Route: 002
  12. METHADONE [Suspect]
     Active Substance: METHADONE HYDROCHLORIDE
     Indication: Agitation
     Dosage: 30 MILLIGRAM DAILY;
     Route: 065
  13. METHADONE [Suspect]
     Active Substance: METHADONE HYDROCHLORIDE
     Indication: Drug dependence
  14. PHENOBARBITAL [Suspect]
     Active Substance: PHENOBARBITAL
     Indication: Agitation
     Dosage: 390 MILLIGRAM DAILY;
     Route: 065
  15. PHENOBARBITAL [Suspect]
     Active Substance: PHENOBARBITAL
     Indication: Drug dependence

REACTIONS (5)
  - Agitation [Unknown]
  - Drug dependence [Unknown]
  - Withdrawal syndrome [Unknown]
  - Hypotension [Unknown]
  - Maternal exposure during pregnancy [Unknown]
